FAERS Safety Report 6121183-1 (Version None)
Quarter: 2009Q1

REPORT INFORMATION
  Report Type: 
  Country: None (occurrence: None)
  Receive Date: 20090312
  Receipt Date: 20090223
  Transmission Date: 20090719
  Serious: Yes (Other)
  Sender: FDA-Public Use
  Company Number: 220001M09CHN

PATIENT
  Age: 13 Year
  Sex: Female
  Weight: 46 kg

DRUGS (1)
  1. SAIZEN [Suspect]
     Indication: TURNER'S SYNDROME
     Dosage: 3.3 IU, 1 IN 1 DAYS, OTHER
     Dates: start: 20081029, end: 20090201

REACTIONS (1)
  - CHONDROMA [None]
